FAERS Safety Report 9294165 (Version 1)
Quarter: 2013Q1

REPORT INFORMATION
  Report Type: Spontaneous
  Country: US (occurrence: None)
  Receive Date: 20121226
  Receipt Date: 20121226
  Transmission Date: 20140127
  Serious: Yes (Other)
  Sender: FDA-Public Use
  Company Number: 356310

PATIENT
  Age: 70 Year
  Sex: Female
  Weight: 117.9 kg

DRUGS (9)
  1. LEVEMIR [Suspect]
     Indication: TYPE 1 DIABETES MELLITUS
     Dosage: 10 UNITS, DAILY IN AM
     Route: 058
     Dates: start: 20120703
  2. METFORMIN (METFORMIN) [Concomitant]
  3. ESTRADIOL (ESTRADIOL) (GEL) [Concomitant]
  4. ENALAPRIL [Concomitant]
  5. VYTORIN (EZETIMIBE, SIMVASTATIN) [Concomitant]
  6. PLAVIX (CLOPIDOGREL BISULFATE) [Concomitant]
  7. OMEPRAZOLE (OMEPRAZOLE) [Concomitant]
  8. LEVOTHYROXINE (LEVOTHYROXINE) [Concomitant]
  9. ENABLEX   /01760401/ (DARIFENACIN) [Concomitant]

REACTIONS (2)
  - Product container issue [None]
  - Blood glucose increased [None]
